FAERS Safety Report 15895393 (Version 1)
Quarter: 2019Q1

REPORT INFORMATION
  Report Type: Spontaneous
  Country: US (occurrence: US)
  Receive Date: 20190131
  Receipt Date: 20190131
  Transmission Date: 20190417
  Serious: Yes (Other)
  Sender: FDA-Public Use
  Company Number: US-BAYER-2019-019799

PATIENT
  Age: 38 Year
  Sex: Male

DRUGS (1)
  1. SOLARCAINE [Suspect]
     Active Substance: .ALPHA.-TOCOPHEROL\ALOE VERA LEAF\GLYCERIN\LIDOCAINE\PARABENS
     Dosage: UNK
     Dates: start: 20180702

REACTIONS (10)
  - Hypersensitivity [Unknown]
  - Pruritus [Unknown]
  - Blood pressure abnormal [Unknown]
  - Mental status changes [Unknown]
  - Heart rate irregular [Unknown]
  - Application site pain [Unknown]
  - Heart rate increased [Unknown]
  - Application site erythema [Unknown]
  - Confusional state [Unknown]
  - Palpitations [Unknown]

NARRATIVE: CASE EVENT DATE: 20180702
